FAERS Safety Report 11922003 (Version 3)
Quarter: 2016Q1

REPORT INFORMATION
  Report Type: Spontaneous
  Country: US (occurrence: US)
  Receive Date: 20160115
  Receipt Date: 20160202
  Transmission Date: 20160526
  Serious: Yes (Death)
  Sender: FDA-Public Use
  Company Number: US-JAZZ-2016-US-000631

PATIENT
  Age: 51 Year
  Sex: Male
  Weight: 243.2 kg

DRUGS (17)
  1. PRIALT [Suspect]
     Active Substance: ZICONOTIDE ACETATE
     Dosage: 0.175 ?G, QH
     Route: 037
     Dates: start: 20150727
  2. LEVOTHYROXINE SODIUM. [Concomitant]
     Active Substance: LEVOTHYROXINE SODIUM
     Dosage: 0.25 ?G, QD
     Route: 048
  3. POTASSIUM CHLORIDE. [Concomitant]
     Active Substance: POTASSIUM CHLORIDE
     Dosage: 20 MEQ, BID
     Route: 048
     Dates: start: 20150415
  4. VITAMIN D3 [Concomitant]
     Active Substance: CHOLECALCIFEROL
     Dosage: 2000 U, QD
     Route: 048
  5. CYMBALTA [Concomitant]
     Active Substance: DULOXETINE HYDROCHLORIDE
     Dosage: 60 MG, BID
     Route: 048
  6. MAGNESIUM [Concomitant]
     Active Substance: MAGNESIUM
     Dosage: 1000 MG, QD
     Route: 048
  7. PRIALT [Suspect]
     Active Substance: ZICONOTIDE ACETATE
     Dosage: 0.129 ?G, QH
     Route: 037
     Dates: start: 20150618, end: 20150625
  8. TESTOSTERONE. [Concomitant]
     Active Substance: TESTOSTERONE
  9. PRIALT [Suspect]
     Active Substance: ZICONOTIDE ACETATE
     Indication: PAIN
     Dosage: UNK ?G, QH
     Route: 037
     Dates: start: 201505, end: 20150618
  10. CLONIDINE. [Concomitant]
     Active Substance: CLONIDINE
     Dosage: 0.3 MG, QH
     Route: 062
  11. LASIX [Concomitant]
     Active Substance: FUROSEMIDE
     Dosage: 80 MG, BID
     Route: 048
  12. METOLAZONE. [Concomitant]
     Active Substance: METOLAZONE
     Dosage: 2.5 MG, ON MONDAYS AND THURSDAYS
     Route: 048
     Dates: start: 20150415
  13. VITAMIN B COMP [Concomitant]
  14. MELATONIN [Concomitant]
     Active Substance: MELATONIN
     Dosage: 10 MG, UNK
     Route: 048
  15. PRIALT [Suspect]
     Active Substance: ZICONOTIDE ACETATE
     Dosage: 0.138 ?G, QH
     Route: 037
     Dates: start: 20150625
  16. PRIALT [Suspect]
     Active Substance: ZICONOTIDE ACETATE
     Dosage: 0.188 ?G, QH
     Route: 037
  17. VITAMIN D2 [Concomitant]
     Active Substance: ERGOCALCIFEROL
     Dosage: 50000 U, UNK
     Route: 048

REACTIONS (9)
  - Back pain [Unknown]
  - Dyspnoea [Unknown]
  - Incision site infection [Unknown]
  - Insomnia [Unknown]
  - Respiratory arrest [Fatal]
  - Pneumonia aspiration [Fatal]
  - Disorientation [Unknown]
  - Cardiac arrest [Fatal]
  - Abdominal pain [Unknown]

NARRATIVE: CASE EVENT DATE: 201407
